FAERS Safety Report 5075259-0 (Version None)
Quarter: 2006Q3

REPORT INFORMATION
  Report Type: 
  Country: None (occurrence: None)
  Receive Date: 20060804
  Receipt Date: 20060731
  Transmission Date: 20061208
  Serious: Yes (Hospitalization, Other)
  Sender: FDA-Public Use
  Company Number: US-2005-023456

PATIENT
  Age: 69 Year
  Sex: Female
  Weight: 58 kg

DRUGS (3)
  1. MAGNEVIST [Suspect]
     Indication: NUCLEAR MAGNETIC RESONANCE IMAGING BRAIN
     Dosage: 1 DOSE, INTRAVENOUS
     Route: 042
     Dates: start: 20051026, end: 20051026
  2. THYROID THERAPY [Concomitant]
  3. ATIVAN [Concomitant]

REACTIONS (13)
  - ARTHRALGIA [None]
  - AURICULAR SWELLING [None]
  - CHILLS [None]
  - DERMATITIS CONTACT [None]
  - FATIGUE [None]
  - FEELING COLD [None]
  - INJECTION SITE DISCOLOURATION [None]
  - LOCAL SWELLING [None]
  - MENINGITIS BACTERIAL [None]
  - MYALGIA [None]
  - NASOPHARYNGITIS [None]
  - SWELLING FACE [None]
  - URTICARIA [None]
